FAERS Safety Report 7576133-8 (Version None)
Quarter: 2011Q2

REPORT INFORMATION
  Report Type: 
  Country: None (occurrence: None)
  Receive Date: 20110623
  Receipt Date: 20110623
  Transmission Date: 20111010
  Serious: Yes (Disabling)
  Sender: FDA-Public Use
  Company Number: None

PATIENT
  Sex: Male
  Weight: 12 kg

DRUGS (1)
  1. ONCASPAR [Suspect]
     Indication: ACUTE LYMPHOCYTIC LEUKAEMIA
     Dosage: 2500 UNITS/M2 ONCE IV ONE DOSE
     Route: 042

REACTIONS (6)
  - EYE PRURITUS [None]
  - SNEEZING [None]
  - INFUSION RELATED REACTION [None]
  - ERYTHEMA [None]
  - CRYING [None]
  - COUGH [None]
